FAERS Safety Report 8273634-4 (Version None)
Quarter: 2012Q2

REPORT INFORMATION
  Report Type: 
  Country: None (occurrence: None)
  Receive Date: 20120411
  Receipt Date: 20120403
  Transmission Date: 20120825
  Serious: Yes (Other)
  Sender: FDA-Public Use
  Company Number: US-BRISTOL-MYERS SQUIBB COMPANY-16337453

PATIENT
  Age: 59 Year
  Sex: Female

DRUGS (1)
  1. ORENCIA [Suspect]
     Dosage: TWO INFUSIONS,3 MONTHS AGO,INTER DURING TREATMENT AND RESTARTED ON 02JAN12 SWITCHED FROM IV TO SC
     Route: 058
     Dates: start: 20110701

REACTIONS (2)
  - THROMBOSIS IN DEVICE [None]
  - HERPES OPHTHALMIC [None]
